FAERS Safety Report 15548951 (Version 1)
Quarter: 2018Q4

REPORT INFORMATION
  Report Type: Spontaneous
  Country: DE (occurrence: DE)
  Receive Date: 20181025
  Receipt Date: 20181025
  Transmission Date: 20190205
  Serious: Yes (Other)
  Sender: FDA-Public Use
  Company Number: DE-ROCHE-2199392

PATIENT
  Sex: Male

DRUGS (1)
  1. RIVOTRIL [Suspect]
     Active Substance: CLONAZEPAM
     Indication: PRODUCT USED FOR UNKNOWN INDICATION
     Route: 065
     Dates: start: 2018

REACTIONS (6)
  - Agitation [Unknown]
  - Fatigue [Unknown]
  - Disorientation [Unknown]
  - Drug ineffective [Unknown]
  - Muscle spasms [Unknown]
  - Abdominal pain upper [Unknown]

NARRATIVE: CASE EVENT DATE: 20181011
